FAERS Safety Report 5813327-3 (Version None)
Quarter: 2008Q3

REPORT INFORMATION
  Report Type: 
  Country: None (occurrence: None)
  Receive Date: 20080717
  Receipt Date: 20080715
  Transmission Date: 20090109
  Serious: Yes (Hospitalization)
  Sender: FDA-Public Use
  Company Number: FR-BRISTOL-MYERS SQUIBB COMPANY-14264527

PATIENT
  Age: 65 Year
  Sex: Female

DRUGS (5)
  1. COAPROVEL FILM-COATED TABS [Suspect]
     Indication: HYPERTENSION
  2. EFFEXOR [Suspect]
     Indication: DEPRESSION
     Dates: end: 20080408
  3. ZOLPIDEM TARTRATE [Suspect]
  4. FOSAVANCE [Suspect]
     Indication: OSTEOPOROSIS
  5. OMEPRAZOLE [Suspect]
     Indication: GASTRIC ULCER

REACTIONS (2)
  - CONVULSION [None]
  - MALAISE [None]
